FAERS Safety Report 9770598 (Version 1)
Quarter: 2013Q4

REPORT INFORMATION
  Report Type: Spontaneous
  Country: CA (occurrence: CA)
  Receive Date: 20131218
  Receipt Date: 20131218
  Transmission Date: 20140711
  Serious: Yes (Hospitalization)
  Sender: FDA-Public Use
  Company Number: CA-GLAXOSMITHKLINE-A1053147A

PATIENT
  Age: 56 Year
  Sex: Female

DRUGS (9)
  1. TYKERB [Suspect]
     Indication: BREAST CANCER
     Route: 065
     Dates: start: 201305, end: 201310
  2. KADCYLA [Suspect]
     Indication: BREAST CANCER METASTATIC
     Dosage: 270MG UNKNOWN
     Route: 065
     Dates: start: 20131119
  3. HERCEPTIN [Suspect]
     Indication: BREAST CANCER
     Route: 065
     Dates: start: 201104
  4. XELODA [Suspect]
  5. ZOMETA [Concomitant]
     Indication: METASTASES TO BONE
     Route: 042
     Dates: start: 2012
  6. FRAGMIN [Concomitant]
  7. RANITIDINE [Concomitant]
     Dates: start: 2010
  8. CALCIUM [Concomitant]
     Dates: start: 2010
  9. VITAMIN D [Concomitant]

REACTIONS (3)
  - Lung disorder [Unknown]
  - Cough [Unknown]
  - Weight decreased [Unknown]
